FAERS Safety Report 5413306-4 (Version None)
Quarter: 2007Q3

REPORT INFORMATION
  Report Type: 
  Country: None (occurrence: None)
  Receive Date: 20070810
  Receipt Date: 20070717
  Transmission Date: 20080115
  Serious: Yes (Life-Threatening, Hospitalization)
  Sender: FDA-Public Use
  Company Number: 2007RR-08752

PATIENT
  Age: 78 Year
  Sex: Female

DRUGS (7)
  1. CO-AMILOFRUSE (AMILORIDE HYDROCHLORIDE, FUROSEMIDE) UNKNOWN [Suspect]
  2. FENOFIBRATE [Suspect]
  3. OMEPRAZOLE [Suspect]
  4. DIGOXIN [Concomitant]
  5. LEVOTHYROXINE SODIUM [Concomitant]
  6. TEMAZEPAM [Concomitant]
  7. WARFARIN SODIUM [Concomitant]

REACTIONS (1)
  - BONE MARROW FAILURE [None]
